FAERS Safety Report 24145033 (Version 2)
Quarter: 2025Q2

REPORT INFORMATION
  Report Type: Report from Study
  Country: US (occurrence: US)
  Receive Date: 20240729
  Receipt Date: 20250509
  Transmission Date: 20250716
  Serious: Yes (Death)
  Sender: ABBVIE
  Company Number: US-ABBVIE-5856753

PATIENT
  Age: 79 Year
  Sex: Male

DRUGS (17)
  1. VENCLEXTA [Suspect]
     Active Substance: VENETOCLAX
     Indication: Myelodysplastic syndrome
     Dosage: 10MG AND 50MG TABLET   DISCONTINUED JUN 2022?TAKE 1 TABLET WITH 2 VENCLEXTA 10MG TABLET FOR TOTAL...
     Route: 048
     Dates: start: 20220627
  2. VENCLEXTA [Suspect]
     Active Substance: VENETOCLAX
     Indication: Myelodysplastic syndrome
     Dosage: 100 MG TABLET  DISCONTINUED JUN 2022?TAKE 1 TABLET PO ON DAYS 1, 2 TABLETS PO ON DAY 2 AND 4 TABL...
     Route: 048
     Dates: start: 20220627
  3. VENCLEXTA [Suspect]
     Active Substance: VENETOCLAX
     Indication: Myelodysplastic syndrome
     Dosage: TAKE 1 TABLETS PO ON DAY 1, 2 TABLETS PO ON DAY 2, AND 4 TABLETS PO ON DAY 3 AND?BEYOND. ?STRENGT...
     Route: 048
     Dates: start: 20220617
  4. VENCLEXTA [Suspect]
     Active Substance: VENETOCLAX
     Indication: Myelodysplastic syndrome
     Dosage: TAKE 1 TABLETS PO ON DAY 1, 2 TABLETS PO ON DAY 2. AND 4 TABLETS PO ON DAY 3 AND?BEYOND.?STRENGTH...
     Route: 048
     Dates: start: 20220615
  5. VENCLEXTA [Suspect]
     Active Substance: VENETOCLAX
     Indication: Myelodysplastic syndrome
     Dosage: TAKE 1 TABLETS PO ON DAY 1, 2 TABLETS PO ON DAY 2. AND 4 TABLETS PO ON DAY 3 AND?BEYOND.?STRENGTH...
     Route: 048
     Dates: start: 20220613
  6. VENCLEXTA [Suspect]
     Active Substance: VENETOCLAX
     Indication: Myelodysplastic syndrome
     Dosage: 10MG AND 50MG TABLET  DISCONTINUED JUN 2022?TAKE 1 TABLET WITH 2 VENCLEXTA 10MG TABLET FOR TOTAL ...
     Route: 048
     Dates: start: 20220628
  7. AZACITIDINE [Concomitant]
     Active Substance: AZACITIDINE
     Indication: Product used for unknown indication
     Route: 042
     Dates: start: 20220627
  8. ACYCLOVIR [Concomitant]
     Active Substance: ACYCLOVIR
     Indication: Antiviral prophylaxis
     Route: 048
     Dates: start: 20220617
  9. ALLOPURINOL [Concomitant]
     Active Substance: ALLOPURINOL
     Indication: Product used for unknown indication
     Route: 048
     Dates: start: 20220617
  10. AMLODIPINE [Concomitant]
     Active Substance: AMLODIPINE BESYLATE
     Indication: Product used for unknown indication
     Route: 048
  11. BACTRIM DS [Concomitant]
     Active Substance: SULFAMETHOXAZOLE\TRIMETHOPRIM
     Indication: Product used for unknown indication
  12. COMPAZINE [Concomitant]
     Active Substance: PROCHLORPERAZINE MALEATE
     Indication: Nausea
     Route: 048
  13. DEXAMETHASONE [Concomitant]
     Active Substance: DEXAMETHASONE
     Indication: Product used for unknown indication
     Route: 048
  14. IRBESARTAN [Concomitant]
     Active Substance: IRBESARTAN
     Indication: Product used for unknown indication
     Route: 048
  15. ONDANSETRON [Concomitant]
     Active Substance: ONDANSETRON
     Indication: Nausea
     Dosage: AS NEEDED
     Route: 048
  16. POSACONAZOLE [Concomitant]
     Active Substance: POSACONAZOLE
     Indication: Product used for unknown indication
     Dosage: TAKE 3 TABLETS WHILE ON AZACITIDINE TREATMENT
     Route: 048
  17. ROSUVASTATIN [Concomitant]
     Active Substance: ROSUVASTATIN
     Indication: Product used for unknown indication
     Route: 048

REACTIONS (2)
  - Death [Fatal]
  - Off label use [Unknown]

NARRATIVE: CASE EVENT DATE: 20240614
